FAERS Safety Report 12950025 (Version 4)
Quarter: 2016Q4

REPORT INFORMATION
  Report Type: Spontaneous
  Country: PL (occurrence: PL)
  Receive Date: 20161117
  Receipt Date: 20161208
  Transmission Date: 20170207
  Serious: Yes (Death, Other)
  Sender: FDA-Public Use
  Company Number: PL-B.I. PHARMACEUTICALS,INC./RIDGEFIELD-2016-BI-078533

PATIENT
  Age: 53 Year
  Sex: Male
  Weight: 87 kg

DRUGS (5)
  1. NEBILET [Concomitant]
     Active Substance: NEBIVOLOL
     Indication: BLOOD PRESSURE INCREASED
     Route: 048
  2. EBRANTIL [Concomitant]
     Active Substance: URAPIDIL
     Indication: BLOOD PRESSURE INCREASED
     Route: 042
  3. CAPTOPRIL. [Concomitant]
     Active Substance: CAPTOPRIL
     Indication: PRODUCT USED FOR UNKNOWN INDICATION
     Route: 065
  4. ACTILYSE [Suspect]
     Active Substance: ALTEPLASE
     Indication: ISCHAEMIC STROKE
     Route: 042
     Dates: start: 20161109, end: 20161109
  5. INDAPEN [Concomitant]
     Active Substance: INDAPAMIDE
     Indication: BLOOD PRESSURE INCREASED
     Dosage: SR -SUSTAIN RELEASE
     Route: 048

REACTIONS (11)
  - Respiratory failure [Fatal]
  - Laryngeal oedema [Fatal]
  - Oropharyngeal pain [Unknown]
  - Anaphylactic shock [Fatal]
  - Respiratory arrest [Unknown]
  - Cyanosis [Unknown]
  - Loss of consciousness [Unknown]
  - Dyspnoea [Unknown]
  - Blood pressure increased [Unknown]
  - Pharyngeal oedema [Fatal]
  - Wheezing [Unknown]

NARRATIVE: CASE EVENT DATE: 20161109
